FAERS Safety Report 7322724-9 (Version None)
Quarter: 2011Q1

REPORT INFORMATION
  Report Type: 
  Country: None (occurrence: None)
  Receive Date: 20110301
  Receipt Date: 20110113
  Transmission Date: 20110831
  Serious: Yes (Other)
  Sender: FDA-Public Use
  Company Number: US-JNJFOC-20110207487

PATIENT

DRUGS (14)
  1. ANTIVIRALS [Concomitant]
     Indication: PROPHYLAXIS
     Dosage: DAYS 4-13 OR UNTIL GRANULOCYTE RECOVERY
     Route: 065
  2. LEUCOVORIN CALCIUM [Concomitant]
     Indication: PROPHYLAXIS
     Route: 065
  3. CYCLOPHOSPHAMIDE [Suspect]
     Indication: PERIPHERAL T-CELL LYMPHOMA UNSPECIFIED
     Dosage: CYCLES 1,3,5,7. OVER 3 HOURS EVERY 12 HRS X 6 DOSE DAYS 1-3
     Route: 042
  4. PREDNISONE [Concomitant]
     Indication: PROPHYLAXIS
     Route: 047
  5. VINCRISTINE [Suspect]
     Indication: PERIPHERAL T-CELL LYMPHOMA UNSPECIFIED
     Dosage: CYCLES 1,3,5,7. DAY 4 AND DAY 11, MAX 2 MG
     Route: 042
  6. METHOTREXATE [Suspect]
     Dosage: OVER 2 HRS DAY 2, CYCLES 2,4,6,8
     Route: 042
  7. CYTARABINE [Suspect]
     Indication: PERIPHERAL T-CELL LYMPHOMA UNSPECIFIED
     Dosage: CYCLES 2,4,6,8. OVER 2 HRS EVERY 12 HRS X 4. DAYS 3-4
     Route: 042
  8. METHOTREXATE [Suspect]
     Indication: PERIPHERAL T-CELL LYMPHOMA UNSPECIFIED
     Dosage: OVER 22 HOURS ON DAY 2, CYCLES 2,4,6,8
     Route: 042
  9. GRANULOCYTE COLONY STIMULATING FACTOR [Concomitant]
     Indication: PROPHYLAXIS
     Route: 065
  10. MESNA [Concomitant]
     Indication: PROPHYLAXIS
     Route: 065
  11. DOXORUBICIN HCL [Suspect]
     Indication: PERIPHERAL T-CELL LYMPHOMA UNSPECIFIED
     Dosage: CYCLES 1,3,5,7.  OVER 1 HOUR ON DAY 2
     Route: 042
  12. COMBINATIONS OF ANTIBACTERIALS [Concomitant]
     Indication: PROPHYLAXIS
     Dosage: DAYS 4-13 OR UNTIL GRANULOCYTE RECOVERY
     Route: 065
  13. DEXAMETHASONE [Suspect]
     Indication: PERIPHERAL T-CELL LYMPHOMA UNSPECIFIED
     Route: 065
  14. ANTIFUNGAL [Concomitant]
     Indication: PROPHYLAXIS
     Dosage: DAYS 4-13 OR UNTIL GRANULOCYTE RECOVERY
     Route: 065

REACTIONS (1)
  - LIVER FUNCTION TEST ABNORMAL [None]
